FAERS Safety Report 15760488 (Version 8)
Quarter: 2024Q4

REPORT INFORMATION
  Report Type: Spontaneous
  Country: FI (occurrence: FI)
  Receive Date: 20181226
  Receipt Date: 20241226
  Transmission Date: 20250115
  Serious: Yes (Hospitalization, Other)
  Sender: MYLAN
  Company Number: FI-MYLANLABS-2018M1088247

PATIENT
  Age: 38 Year
  Sex: Male
  Weight: 86 kg

DRUGS (19)
  1. CLOZAPINE [Suspect]
     Active Substance: CLOZAPINE
     Indication: Schizophrenia
     Dosage: 150 MILLIGRAM, QD
     Route: 065
     Dates: start: 201810
  2. CLOZAPINE [Suspect]
     Active Substance: CLOZAPINE
     Dosage: 12.5 MILLIGRAM, QD
     Route: 065
     Dates: start: 20181026, end: 2018
  3. CLOZAPINE [Suspect]
     Active Substance: CLOZAPINE
     Dosage: UNK
     Route: 065
     Dates: start: 2018, end: 201811
  4. CLOZAPINE [Suspect]
     Active Substance: CLOZAPINE
     Dosage: UNK
     Dates: start: 20181101
  5. CLOZAPINE [Suspect]
     Active Substance: CLOZAPINE
     Dosage: 150 MILLIGRAM, QD
     Dates: start: 201811, end: 20181121
  6. CLOZAPINE [Suspect]
     Active Substance: CLOZAPINE
     Dosage: 150 MILLIGRAM, QD
     Dates: start: 20181109, end: 20181122
  7. CLOZAPINE [Suspect]
     Active Substance: CLOZAPINE
     Dosage: UNK
     Dates: start: 20190114, end: 2019
  8. CLOZAPINE [Suspect]
     Active Substance: CLOZAPINE
     Dosage: 175 MILLIGRAM, QD
     Dates: start: 2019, end: 201902
  9. RISPERIDONE [Concomitant]
     Active Substance: RISPERIDONE
     Indication: Schizophrenia
     Dosage: 6 MILLIGRAM, QD
     Route: 048
     Dates: start: 20181004
  10. Temesta [Concomitant]
     Indication: Schizophrenia
     Dosage: 1 MILLIGRAM, TID
     Route: 048
     Dates: start: 20180909
  11. IBUPROFEN [Concomitant]
     Active Substance: IBUPROFEN
     Indication: Pain
     Dosage: 400 MILLIGRAM, TID
     Route: 048
  12. IBUPROFEN [Concomitant]
     Active Substance: IBUPROFEN
     Dosage: 1200 MILLIGRAM, QD (400 MILLIGRAM, TID)
     Route: 048
     Dates: start: 20180909
  13. QUETIAPINE FUMARATE [Concomitant]
     Active Substance: QUETIAPINE FUMARATE
     Indication: Schizophrenia
     Dosage: 25 MILLIGRAM, PRN ( 1-4 TIMES A DAY IF NEEDED)
     Route: 048
     Dates: start: 20180909
  14. LEVOMEPROMAZINE [Concomitant]
     Active Substance: LEVOMEPROMAZINE
     Indication: Product used for unknown indication
     Dosage: 25 MILLIGRAM, PRN ( 1-4 TIMES A DAY IF NEEDED)
     Route: 065
  15. PROPRANOLOL HYDROCHLORIDE [Concomitant]
     Active Substance: PROPRANOLOL HYDROCHLORIDE
     Indication: Product used for unknown indication
     Dosage: 20 MILLIGRAM, PRN (1-3 TIMES A DAY IF NEEDED)
     Route: 065
  16. AKINETON [Concomitant]
     Active Substance: BIPERIDEN HYDROCHLORIDE
     Indication: Extrapyramidal disorder
     Dosage: 5 MILLIGRAM, PRN ( 1-2 TIMES A DAY IF NEEDED)
     Route: 048
     Dates: start: 20180909
  17. HALOPERIDOL [Concomitant]
     Active Substance: HALOPERIDOL
     Indication: Product used for unknown indication
     Dosage: 5 MILLIGRAM, PRN (, 1-2 TIMES A DAY IF NEEDED)
     Route: 030
  18. ATIVAN [Concomitant]
     Active Substance: LORAZEPAM
     Indication: Product used for unknown indication
     Dosage: PRN 2-4 MILLIGRAM, IF NEEDED
     Route: 030
  19. LORAZEPAM [Concomitant]
     Active Substance: LORAZEPAM
     Indication: Schizophrenia
     Dosage: 3 MILLIGRAM
     Route: 065

REACTIONS (16)
  - Dehydration [Recovered/Resolved]
  - Pain [Recovered/Resolved]
  - Abdominal pain [Recovered/Resolved]
  - Eosinophilic colitis [Recovered/Resolved]
  - Schizophrenia [Unknown]
  - C-reactive protein increased [Not Recovered/Not Resolved]
  - Influenza like illness [Unknown]
  - Abdominal pain upper [Unknown]
  - Malaise [Unknown]
  - Charcot-Leyden crystals [Unknown]
  - Tachycardia [Not Recovered/Not Resolved]
  - Pyrexia [Not Recovered/Not Resolved]
  - Vomiting [Recovered/Resolved]
  - White blood cell count increased [Recovered/Resolved]
  - Diarrhoea [Recovered/Resolved]
  - Eosinophilia [Recovered/Resolved]

NARRATIVE: CASE EVENT DATE: 20181101
